FAERS Safety Report 6077327-3 (Version None)
Quarter: 2009Q1

REPORT INFORMATION
  Report Type: 
  Country: None (occurrence: None)
  Receive Date: 20090213
  Receipt Date: 20090209
  Transmission Date: 20090719
  Serious: Yes (Hospitalization)
  Sender: FDA-Public Use
  Company Number: B0557451A

PATIENT
  Age: 42 Year
  Sex: Male

DRUGS (2)
  1. ABACAVIR SULFATE/LAMIVUDINE [Suspect]
     Indication: HIV INFECTION
     Dosage: 1TAB PER DAY
     Route: 048
     Dates: start: 20070101
  2. STATINS [Concomitant]
     Indication: BLOOD CHOLESTEROL INCREASED
     Route: 065

REACTIONS (1)
  - MYOCARDIAL INFARCTION [None]
